FAERS Safety Report 5291732-4 (Version None)
Quarter: 2007Q2

REPORT INFORMATION
  Report Type: 
  Country: None (occurrence: None)
  Receive Date: 20070410
  Receipt Date: 20070328
  Transmission Date: 20071010
  Serious: Yes (Disabling)
  Sender: FDA-Public Use
  Company Number: FR-BAYER-200710241BFR

PATIENT
  Age: 52 Year
  Sex: Male
  Weight: 67 kg

DRUGS (5)
  1. NEXAVAR [Suspect]
     Indication: METASTATIC RENAL CELL CARCINOMA
     Route: 048
     Dates: start: 20060923
  2. SUTENT [Concomitant]
     Indication: METASTATIC RENAL CELL CARCINOMA
  3. GEMZAR [Concomitant]
     Indication: METASTATIC RENAL CELL CARCINOMA
  4. AVASTIN [Concomitant]
     Indication: METASTATIC RENAL CELL CARCINOMA
  5. CORTISONE ACETATE [Concomitant]
     Indication: UNEVALUABLE EVENT

REACTIONS (1)
  - MONOPLEGIA [None]
